FAERS Safety Report 4966401-8 (Version None)
Quarter: 2006Q2

REPORT INFORMATION
  Report Type: 
  Country: None (occurrence: None)
  Receive Date: 20060407
  Receipt Date: 20050914
  Transmission Date: 20061013
  Serious: Yes (Hospitalization, Other)
  Sender: FDA-Public Use
  Company Number: CA-MERCK-0509CAN00092

PATIENT
  Age: 70 Year
  Sex: Female
  Weight: 57 kg

DRUGS (2)
  1. VIOXX [Suspect]
     Indication: ARTHRITIS
     Route: 048
     Dates: start: 20010604, end: 20041001
  2. ACETAMINOPHEN [Concomitant]
     Indication: PAIN
     Route: 065

REACTIONS (6)
  - CEREBROVASCULAR ACCIDENT [None]
  - ISCHAEMIC STROKE [None]
  - MYOCARDIAL INFARCTION [None]
  - PANIC ATTACK [None]
  - STRESS [None]
  - TRANSIENT ISCHAEMIC ATTACK [None]
